FAERS Safety Report 12575814 (Version 1)
Quarter: 2016Q3

REPORT INFORMATION
  Report Type: Spontaneous
  Country: IT (occurrence: IT)
  Receive Date: 20160720
  Receipt Date: 20160720
  Transmission Date: 20161109
  Serious: Yes (Other)
  Sender: FDA-Public Use
  Company Number: IT-SA-2016SA131728

PATIENT
  Age: 89 Year
  Sex: Female

DRUGS (2)
  1. KARVEA [Suspect]
     Active Substance: IRBESARTAN
     Indication: HYPERTENSION
     Route: 048
     Dates: start: 20160101, end: 20160509
  2. LASIX [Suspect]
     Active Substance: FUROSEMIDE
     Indication: ANURIA
     Route: 048
     Dates: start: 20160101, end: 20160509

REACTIONS (2)
  - Syncope [Recovering/Resolving]
  - Loss of consciousness [Recovering/Resolving]

NARRATIVE: CASE EVENT DATE: 20160509
